FAERS Safety Report 10147141 (Version 1)
Quarter: 2014Q2

REPORT INFORMATION
  Report Type: Report from Study
  Country: US (occurrence: US)
  Receive Date: 20140501
  Receipt Date: 20140501
  Transmission Date: 20141212
  Serious: Yes (Hospitalization, Other)
  Sender: FDA-Public Use
  Company Number: US-PURDUE-USA-2014-0113405

PATIENT
  Age: 61 Year
  Sex: Female

DRUGS (1)
  1. OXY CR TAB [Suspect]
     Indication: COMPLEX REGIONAL PAIN SYNDROME
     Dosage: 20 MG, TID
     Route: 048

REACTIONS (3)
  - Cholelithiasis [Unknown]
  - Cerebrovascular accident [Unknown]
  - Pain [Unknown]
